FAERS Safety Report 5799452-4 (Version None)
Quarter: 2008Q3

REPORT INFORMATION
  Report Type: 
  Country: None (occurrence: None)
  Receive Date: 20080703
  Receipt Date: 20080625
  Transmission Date: 20090109
  Serious: Yes (Death, Other)
  Sender: FDA-Public Use
  Company Number: HK-BRISTOL-MYERS SQUIBB COMPANY-14245070

PATIENT
  Age: 63 Year
  Sex: Male

DRUGS (7)
  1. VEPESID [Suspect]
     Indication: LYMPHOMA
     Dosage: ON DAYS 2-4.
     Route: 042
  2. IFOSFAMIDE [Suspect]
     Indication: LYMPHOMA
     Dosage: 1.5 GRAM PER M2 ON DAYS 2-4.
     Route: 042
  3. METHOTREXATE [Suspect]
     Indication: LYMPHOMA
     Dosage: PER M2 OVER 6 HOURS ON DAY1.
     Route: 042
  4. ELSPAR [Suspect]
     Indication: LYMPHOMA
     Dosage: DF- UNITS/M2. ON DAYS 8,10,12,14,16,18 AND 20.
     Route: 042
  5. DEXAMETHASONE TAB [Suspect]
     Indication: LYMPHOMA
     Dosage: 40MG PER BODY ON DAYS 2 - 4.
     Route: 042
  6. LEUCOVORIN CALCIUM [Concomitant]
  7. MESNA [Concomitant]
     Dosage: AT 4 AND 8 HOURS.

REACTIONS (7)
  - ALANINE AMINOTRANSFERASE INCREASED [None]
  - ANAEMIA [None]
  - ASPARTATE AMINOTRANSFERASE INCREASED [None]
  - FEBRILE NEUTROPENIA [None]
  - LEUKOPENIA [None]
  - NEUTROPENIA [None]
  - SEPSIS [None]
